FAERS Safety Report 10232882 (Version 1)
Quarter: 2014Q2

REPORT INFORMATION
  Report Type: Spontaneous
  Country: GB (occurrence: None)
  Receive Date: 20140610
  Receipt Date: 20140610
  Transmission Date: 20141212
  Serious: Yes (Hospitalization, Disabling)
  Sender: FDA-Public Use
  Company Number: AUR-APL-2014-06194

PATIENT
  Age: 73 Year
  Sex: Female
  Weight: 70 kg

DRUGS (5)
  1. RISPERIDONE (RISPERIDONE) [Suspect]
     Indication: AGGRESSION
     Route: 048
     Dates: start: 201307
  2. BUTRANS (BUPRENORPHINE) [Suspect]
     Indication: BACK PAIN
     Dosage: 1 HOUR
     Route: 062
     Dates: start: 20140508, end: 20140518
  3. LORAZEPAM (LORAZEPAM) [Concomitant]
  4. PARACETAMOL (PARACETAMOL) [Concomitant]
  5. PREGABALIN (PREGBALIN) [Concomitant]

REACTIONS (3)
  - Delirium [None]
  - Parkinsonism [None]
  - Intention tremor [None]
